FAERS Safety Report 25635361 (Version 1)
Quarter: 2025Q3

REPORT INFORMATION
  Report Type: Spontaneous
  Country: KR (occurrence: KR)
  Receive Date: 20250802
  Receipt Date: 20250802
  Transmission Date: 20251021
  Serious: Yes (Other)
  Sender: AMGEN
  Company Number: KR-AMGEN-KORSP2025150678

PATIENT

DRUGS (4)
  1. XGEVA [Suspect]
     Active Substance: DENOSUMAB
     Indication: Bone giant cell tumour
     Route: 065
  2. XGEVA [Suspect]
     Active Substance: DENOSUMAB
     Route: 065
  3. XGEVA [Suspect]
     Active Substance: DENOSUMAB
     Route: 065
  4. XGEVA [Suspect]
     Active Substance: DENOSUMAB
     Dosage: 120 MILLIGRAM, Q4WK
     Route: 065

REACTIONS (3)
  - Bone giant cell tumour [Unknown]
  - Off label use [Unknown]
  - Product dose omission issue [Unknown]
